FAERS Safety Report 4598782-1 (Version None)
Quarter: 2005Q1

REPORT INFORMATION
  Report Type: 
  Country: None (occurrence: None)
  Receive Date: 20050301
  Receipt Date: 20050216
  Transmission Date: 20050727
  Serious: Yes (Hospitalization)
  Sender: FDA-Public Use
  Company Number: 2005032958

PATIENT
  Age: 7 Year
  Sex: Male

DRUGS (3)
  1. BENADRYL [Suspect]
     Indication: HYPERSENSITIVITY
     Dosage: INTRAVENOUS
     Route: 042
     Dates: start: 20050211
  2. BENADRYL [Suspect]
     Indication: HYPERSENSITIVITY
     Dosage: 4 IN 1 D, ORAL
     Route: 048
     Dates: start: 20050209
  3. ALL OTHER THERAPEUTIC PRODUCTS (ALL OTHER THERAPEUTIC PRODUCTS) [Concomitant]

REACTIONS (1)
  - DRUG HYPERSENSITIVITY [None]
